FAERS Safety Report 5564299-0 (Version None)
Quarter: 2007Q4

REPORT INFORMATION
  Report Type: 
  Country: None (occurrence: None)
  Receive Date: 20071218
  Receipt Date: 20071210
  Transmission Date: 20080405
  Serious: Yes (Hospitalization, Other)
  Sender: FDA-Public Use
  Company Number: PHRM2007FR02770

PATIENT
  Age: 94 Year
  Sex: Female

DRUGS (3)
  1. EXELON [Suspect]
     Indication: DEMENTIA ALZHEIMER'S TYPE
     Dosage: 1 DF, QD
     Route: 048
     Dates: start: 20071023, end: 20071023
  2. CARTEOL [Concomitant]
  3. RISPERDAL [Concomitant]
     Indication: HALLUCINATION
     Dosage: 0.5 DF, QD

REACTIONS (7)
  - BRADYPHRENIA [None]
  - DEPRESSED LEVEL OF CONSCIOUSNESS [None]
  - GAIT DISTURBANCE [None]
  - HYPOTENSION [None]
  - MALAISE [None]
  - PALLOR [None]
  - PULSE PRESSURE DECREASED [None]
